FAERS Safety Report 7375457-7 (Version None)
Quarter: 2011Q1

REPORT INFORMATION
  Report Type: 
  Country: None (occurrence: None)
  Receive Date: 20110325
  Receipt Date: 20110317
  Transmission Date: 20110831
  Serious: Yes (Death, Hospitalization, Other)
  Sender: FDA-Public Use
  Company Number: BE-MPIJNJ-2010-06027

PATIENT

DRUGS (6)
  1. DEXAMETHASONE [Concomitant]
     Dosage: 20 MG, UNK
     Route: 048
     Dates: start: 20100617, end: 20100730
  2. ENDOXAN                            /00021101/ [Concomitant]
     Dosage: 50 MG, TID
     Route: 048
     Dates: start: 20100617, end: 20100730
  3. HYDROCORTISONE [Concomitant]
     Dosage: UNK
     Dates: start: 20100617, end: 20100723
  4. REVLIMID [Concomitant]
     Dosage: 25 MG, QD
     Route: 048
     Dates: start: 20100617, end: 20100730
  5. VELCADE [Suspect]
     Indication: MULTIPLE MYELOMA
     Dosage: UNK
  6. METOTREXATO                        /00113801/ [Concomitant]
     Dosage: 15 MG, UNK
     Dates: start: 20100617, end: 20100723

REACTIONS (3)
  - METASTASES TO MENINGES [None]
  - PNEUMONIA [None]
  - DEHYDRATION [None]
